FAERS Safety Report 20215867 (Version 1)
Quarter: 2021Q4

REPORT INFORMATION
  Report Type: Spontaneous
  Country: TW (occurrence: TW)
  Receive Date: 20211222
  Receipt Date: 20211222
  Transmission Date: 20220303
  Serious: Yes (Hospitalization, Other)
  Sender: FDA-Public Use
  Company Number: TW-ENDO PHARMACEUTICALS INC-2021-013693

PATIENT
  Age: 22 Year
  Sex: Male

DRUGS (2)
  1. KETALAR [Suspect]
     Active Substance: KETAMINE HYDROCHLORIDE
     Indication: Substance use
     Dosage: 5 G, WEEKLY (INHALATION)
  2. KETALAR [Suspect]
     Active Substance: KETAMINE HYDROCHLORIDE
     Dosage: 10-15 G, WEEKLY FOR MONTHS (INHALATION)

REACTIONS (5)
  - Major depression [Recovered/Resolved]
  - Obsessive-compulsive disorder [Recovering/Resolving]
  - Condition aggravated [Recovering/Resolving]
  - Drug abuse [Unknown]
  - Mania [Unknown]
